FAERS Safety Report 20046311 (Version 2)
Quarter: 2022Q1

REPORT INFORMATION
  Report Type: Spontaneous
  Country: US (occurrence: US)
  Receive Date: 20211109
  Receipt Date: 20220204
  Transmission Date: 20220423
  Serious: No
  Sender: FDA-Public Use
  Company Number: US-GSKCCFUS-Case-01209589_AE-70833

PATIENT
  Sex: Male

DRUGS (4)
  1. SUMATRIPTAN SUCCINATE [Suspect]
     Active Substance: SUMATRIPTAN SUCCINATE
     Indication: Panic attack
  2. SUMATRIPTAN SUCCINATE [Suspect]
     Active Substance: SUMATRIPTAN SUCCINATE
     Indication: Anxiety
  3. SUMATRIPTAN SUCCINATE [Suspect]
     Active Substance: SUMATRIPTAN SUCCINATE
     Indication: Sciatica
  4. SUMATRIPTAN SUCCINATE [Suspect]
     Active Substance: SUMATRIPTAN SUCCINATE
     Indication: Post-traumatic stress disorder

REACTIONS (2)
  - Therapeutic response unexpected [Unknown]
  - Off label use [Unknown]
